FAERS Safety Report 13039604 (Version 1)
Quarter: 2016Q4

REPORT INFORMATION
  Report Type: Spontaneous
  Country: US (occurrence: US)
  Receive Date: 20161219
  Receipt Date: 20161219
  Transmission Date: 20170207
  Serious: No
  Sender: FDA-Public Use
  Company Number: US-ACTELION-A-NJ2016-143435

PATIENT
  Age: 40 Year
  Sex: Female

DRUGS (17)
  1. SILDENAFIL. [Concomitant]
     Active Substance: SILDENAFIL
  2. SPIRONOLACTONE. [Concomitant]
     Active Substance: SPIRONOLACTONE
  3. AMBRISENTAN [Suspect]
     Active Substance: AMBRISENTAN
     Indication: PULMONARY HYPERTENSION
     Dosage: 10 MG, QD
     Route: 048
     Dates: start: 20150702
  4. APIXABAN [Concomitant]
     Active Substance: APIXABAN
  5. HYDROXYZINE [Concomitant]
     Active Substance: HYDROXYZINE\HYDROXYZINE HYDROCHLORIDE
  6. OMEPRAZOLE. [Concomitant]
     Active Substance: OMEPRAZOLE
  7. LOVENOX [Concomitant]
     Active Substance: ENOXAPARIN SODIUM
  8. LEVOTHYROXINE. [Concomitant]
     Active Substance: LEVOTHYROXINE
  9. BUMETANIDE. [Concomitant]
     Active Substance: BUMETANIDE
  10. UPTRAVI [Suspect]
     Active Substance: SELEXIPAG
     Indication: PULMONARY HYPERTENSION
     Dosage: 1 MG, TID
     Route: 048
  11. METOPROLOL. [Concomitant]
     Active Substance: METOPROLOL
  12. ORENITRAM [Concomitant]
     Active Substance: TREPROSTINIL
  13. LOMOTIL [Concomitant]
     Active Substance: ATROPINE SULFATE\DIPHENOXYLATE HYDROCHLORIDE
  14. SUCRALFATE. [Concomitant]
     Active Substance: SUCRALFATE
  15. TEMAZEPAM. [Concomitant]
     Active Substance: TEMAZEPAM
  16. TRAMADOL. [Concomitant]
     Active Substance: TRAMADOL
  17. BELSOMRA [Concomitant]
     Active Substance: SUVOREXANT

REACTIONS (4)
  - Diarrhoea [Unknown]
  - Chest pain [Unknown]
  - Headache [Unknown]
  - Pain in jaw [Unknown]
